FAERS Safety Report 4528656-3 (Version None)
Quarter: 2004Q4

REPORT INFORMATION
  Report Type: 
  Country: None (occurrence: None)
  Receive Date: 20041216
  Receipt Date: 20041208
  Transmission Date: 20050328
  Serious: Yes (Hospitalization)
  Sender: FDA-Public Use
  Company Number: PHBS2004JP16550

PATIENT
  Age: 22 Year
  Sex: Male

DRUGS (2)
  1. RITALIN [Suspect]
     Indication: DEPRESSED MOOD
     Route: 065
  2. TRIAZOLAM [Concomitant]

REACTIONS (4)
  - ANXIETY [None]
  - IRRITABILITY [None]
  - PERSONALITY DISORDER [None]
  - SUICIDE ATTEMPT [None]
